FAERS Safety Report 9232160 (Version 1)
Quarter: 2013Q2

REPORT INFORMATION
  Report Type: Spontaneous
  Country: US (occurrence: US)
  Receive Date: 20130415
  Receipt Date: 20130415
  Transmission Date: 20140414
  Serious: Yes (Hospitalization, Other)
  Sender: FDA-Public Use
  Company Number: US-PFIZER INC-2013112647

PATIENT
  Sex: Female

DRUGS (2)
  1. ZITHROMAX [Suspect]
     Indication: UPPER RESPIRATORY TRACT INFECTION
     Dosage: 250 MG, 1X/DAY
  2. BYSTOLIC [Suspect]
     Dosage: 10 MG, 1X/DAY
     Route: 048
     Dates: start: 2012, end: 2013

REACTIONS (1)
  - Cardiac arrest [Recovered/Resolved]
